FAERS Safety Report 14280743 (Version 1)
Quarter: 2017Q4

REPORT INFORMATION
  Report Type: Report from Study
  Country: US (occurrence: US)
  Receive Date: 20171213
  Receipt Date: 20171213
  Transmission Date: 20180321
  Serious: Yes (Death, Other)
  Sender: FDA-Public Use
  Company Number: US-EMD SERONO-E2B_80078904

PATIENT
  Age: 48 Year
  Sex: Female

DRUGS (1)
  1. REBIF [Suspect]
     Active Substance: INTERFERON BETA-1A
     Indication: MULTIPLE SCLEROSIS
     Route: 058
     Dates: start: 20170512

REACTIONS (7)
  - Completed suicide [Fatal]
  - Agitation [Unknown]
  - Depression [Not Recovered/Not Resolved]
  - Unevaluable event [Unknown]
  - Mental disorder [Unknown]
  - Multiple sclerosis [Not Recovered/Not Resolved]
  - Gun shot wound [Fatal]

NARRATIVE: CASE EVENT DATE: 201708
